FAERS Safety Report 5160559-6 (Version None)
Quarter: 2006Q4

REPORT INFORMATION
  Report Type: 
  Country: None (occurrence: None)
  Receive Date: 20061121
  Receipt Date: 20061108
  Transmission Date: 20070319
  Serious: Yes (Other)
  Sender: FDA-Public Use
  Company Number: 2006042096

PATIENT
  Age: 34 Year
  Sex: Male

DRUGS (3)
  1. VIAGRA [Suspect]
     Indication: ERECTILE DYSFUNCTION
     Dosage: (50 MG)
  2. ZOLOFT [Suspect]
     Indication: DEPRESSION
     Dates: start: 20050101
  3. ZYPREXA [Suspect]
     Indication: BIPOLAR DISORDER

REACTIONS (5)
  - BIPOLAR DISORDER [None]
  - DEPRESSION [None]
  - LIBIDO DECREASED [None]
  - OEDEMA PERIPHERAL [None]
  - PAIN IN EXTREMITY [None]
